FAERS Safety Report 12308894 (Version 2)
Quarter: 2016Q2

REPORT INFORMATION
  Report Type: Spontaneous
  Country: CA (occurrence: CA)
  Receive Date: 20160427
  Receipt Date: 20160516
  Transmission Date: 20160815
  Serious: Yes (Other)
  Sender: FDA-Public Use
  Company Number: CA-SHIRE-CA201604955

PATIENT
  Age: 31 Year
  Sex: Female

DRUGS (6)
  1. MEZAVANT [Suspect]
     Active Substance: MESALAMINE
     Dosage: 2.4 G (TWO TABLETS), 2X/DAY:BID
     Route: 048
  2. MEZAVANT [Suspect]
     Active Substance: MESALAMINE
     Dosage: 4.8 G (FOUR TABLETS), 1X/DAY:QD (WHEN HAVING FLARES)
     Route: 048
  3. MEZAVANT [Suspect]
     Active Substance: MESALAMINE
     Dosage: 1.2 G, 1X/DAY:QD
     Route: 048
  4. MEZAVANT [Suspect]
     Active Substance: MESALAMINE
     Indication: CROHN^S DISEASE
     Dosage: 2.4 G, 1X/DAY:QD
     Route: 048
  5. OMEGA                              /00661201/ [Concomitant]
     Indication: INFLAMMATION
     Dosage: UNK, UNKNOWN
     Route: 065
  6. MEZAVANT [Suspect]
     Active Substance: MESALAMINE
     Dosage: 3.6 MG (THREE TABLETS), UNKNOWN
     Route: 048

REACTIONS (20)
  - Palpitations [Not Recovered/Not Resolved]
  - Swelling face [Not Recovered/Not Resolved]
  - Constipation [Not Recovered/Not Resolved]
  - Inappropriate schedule of drug administration [Recovered/Resolved]
  - Food intolerance [Not Recovered/Not Resolved]
  - Product use issue [Recovered/Resolved]
  - Incorrect dose administered [Recovered/Resolved]
  - Generalised oedema [Not Recovered/Not Resolved]
  - Diarrhoea [Not Recovered/Not Resolved]
  - Depressed mood [Not Recovered/Not Resolved]
  - Gastrointestinal motility disorder [Not Recovered/Not Resolved]
  - Condition aggravated [Not Recovered/Not Resolved]
  - Gastrointestinal inflammation [Not Recovered/Not Resolved]
  - Haematochezia [Not Recovered/Not Resolved]
  - Large intestinal obstruction [Not Recovered/Not Resolved]
  - Abdominal distension [Not Recovered/Not Resolved]
  - Throat tightness [Not Recovered/Not Resolved]
  - Insomnia [Not Recovered/Not Resolved]
  - Fear [Not Recovered/Not Resolved]
  - Abdominal pain [Not Recovered/Not Resolved]
